FAERS Safety Report 9191024 (Version 5)
Quarter: 2013Q3

REPORT INFORMATION
  Report Type: Spontaneous
  Country: US (occurrence: US)
  Receive Date: 20130326
  Receipt Date: 20130726
  Transmission Date: 20140515
  Serious: Yes (Hospitalization, Disabling, Other)
  Sender: FDA-Public Use
  Company Number: US-009507513-1206USA04377

PATIENT
  Sex: Female

DRUGS (8)
  1. FOSAMAX [Suspect]
     Indication: OSTEOPOROSIS
     Dosage: 70 MG, UNK
     Route: 048
     Dates: start: 200401
  2. FOSAMAX [Suspect]
     Indication: OSTEOPENIA
  3. FOSAMAX [Suspect]
     Indication: OSTEOPOROSIS
     Route: 048
  4. FOSAMAX [Suspect]
     Indication: OSTEOPENIA
  5. ALENDRONATE SODIUM [Suspect]
     Dosage: 70 MG, UNK
  6. CELEXA [Concomitant]
     Indication: DEPRESSION
     Dosage: UNK
     Dates: start: 2001, end: 2005
  7. PAROXETINE [Concomitant]
     Indication: DEPRESSION
     Dosage: UNK
     Dates: start: 2005, end: 2011
  8. PAXIL CR [Concomitant]
     Indication: DEPRESSION
     Dosage: 25 - 40 DF

REACTIONS (67)
  - Osteonecrosis [Unknown]
  - Oesophageal squamous cell carcinoma [Unknown]
  - Carcinoma in situ [Unknown]
  - Squamous cell carcinoma of the tongue [Unknown]
  - Cancer surgery [Unknown]
  - Oesophageal operation [Unknown]
  - Adverse event [Unknown]
  - Osteonecrosis of jaw [Unknown]
  - Dental prosthesis placement [Unknown]
  - Dental prosthesis placement [Unknown]
  - Gingivitis [Unknown]
  - Dental caries [Unknown]
  - Exostosis of jaw [Unknown]
  - Dental prosthesis placement [Unknown]
  - Tooth extraction [Unknown]
  - Dental care [Unknown]
  - Biopsy palate abnormal [Unknown]
  - Tooth extraction [Unknown]
  - Endodontic procedure [Unknown]
  - Endodontic procedure [Unknown]
  - Biopsy bone [Unknown]
  - Biopsy bone [Unknown]
  - Biopsy bone [Unknown]
  - Oral infection [Unknown]
  - Impaired healing [Unknown]
  - Periodontal disease [Unknown]
  - Gingivitis [Unknown]
  - Gingival disorder [Unknown]
  - Tooth extraction [Unknown]
  - Drug intolerance [Unknown]
  - Tooth disorder [Unknown]
  - Hypertension [Unknown]
  - Tongue operation [Unknown]
  - Tongue operation [Unknown]
  - Cholelithiasis [Unknown]
  - Lymphoedema [Unknown]
  - Ulcer [Unknown]
  - Fluid retention [Unknown]
  - Upper respiratory tract infection [Unknown]
  - Hyperkeratosis [Unknown]
  - Systolic dysfunction [Unknown]
  - Bundle branch block left [Unknown]
  - Aortic arteriosclerosis [Unknown]
  - Aortic valve incompetence [Unknown]
  - Pulmonary valve incompetence [Unknown]
  - Left atrial dilatation [Unknown]
  - Haemangioma [Unknown]
  - Hypokalaemia [Unknown]
  - Anxiety [Unknown]
  - Blood glucose increased [Unknown]
  - Tooth extraction [Unknown]
  - Tongue disorder [Recovering/Resolving]
  - Gingival swelling [Unknown]
  - Tooth disorder [Unknown]
  - Tooth fracture [Unknown]
  - Device breakage [Unknown]
  - Device breakage [Unknown]
  - Tooth fracture [Unknown]
  - Dental caries [Unknown]
  - Gingival swelling [Recovering/Resolving]
  - Tooth fracture [Unknown]
  - Endodontic procedure [Unknown]
  - Fistula [Unknown]
  - Endodontic procedure [Unknown]
  - Tooth fracture [Unknown]
  - Dental caries [Unknown]
  - Mouth ulceration [Recovering/Resolving]
